FAERS Safety Report 4437990-7 (Version None)
Quarter: 2004Q3

REPORT INFORMATION
  Report Type: 
  Country: None (occurrence: None)
  Receive Date: 20040831
  Receipt Date: 20040412
  Transmission Date: 20050211
  Serious: No
  Sender: FDA-Public Use
  Company Number: US-GLAXOSMITHKLINE-A0506577A

PATIENT
  Age: 49 Year
  Sex: Female

DRUGS (3)
  1. WELLBUTRIN XL [Suspect]
     Indication: DEPRESSION
     Route: 048
     Dates: start: 19990101, end: 20040201
  2. ATIVAN [Concomitant]
     Indication: ANXIETY
     Dosage: .5MG FOUR TIMES PER DAY
     Route: 048
     Dates: start: 20020802
  3. UNKNOWN MEDICATION [Concomitant]
     Dosage: 25MG PER DAY
     Route: 048
     Dates: start: 20031006

REACTIONS (2)
  - OEDEMA PERIPHERAL [None]
  - PRURITUS [None]
